FAERS Safety Report 7534519-1 (Version None)
Quarter: 2011Q2

REPORT INFORMATION
  Report Type: 
  Country: None (occurrence: None)
  Receive Date: 20110609
  Receipt Date: 20090521
  Transmission Date: 20111010
  Serious: Yes (Death)
  Sender: FDA-Public Use
  Company Number: PHHY2009JP09905

PATIENT
  Sex: Female
  Weight: 38 kg

DRUGS (23)
  1. LASIX [Concomitant]
     Dosage: 40 MG, UNK
     Route: 048
  2. LASIX [Concomitant]
     Dosage: 160 MG, UNK
     Route: 048
  3. BUFFERIN [Concomitant]
     Dosage: 81 MG, UNK
     Route: 048
     Dates: start: 20070809, end: 20071225
  4. LANSOPRAZOLE [Concomitant]
     Dosage: 30 MG, UNK
     Route: 048
     Dates: start: 20070809, end: 20080115
  5. HALCION [Concomitant]
     Dosage: 0.125 MG, UNK
     Route: 048
     Dates: start: 20070809, end: 20080101
  6. VALSARTAN [Suspect]
     Indication: HYPERTENSION
     Dosage: 20 MG, QD
     Route: 048
     Dates: start: 20071009, end: 20080115
  7. LASIX [Concomitant]
     Dosage: 240 MG, UNK
     Route: 048
     Dates: end: 20090115
  8. LASIX [Concomitant]
     Dosage: 80 MG, UNK
     Route: 048
  9. ALFAROL [Concomitant]
     Dosage: 0.25 UG, UNK
     Route: 048
     Dates: start: 20071005, end: 20080115
  10. LASIX [Concomitant]
     Dosage: 120 MG, UNK
     Route: 048
  11. ZYLORIC ^FRESENIUS^ [Concomitant]
     Dosage: 50 MG, UNK
     Route: 048
     Dates: start: 20070809, end: 20080115
  12. CARNACULIN [Concomitant]
     Dosage: 75 MG, UNK
     Route: 048
     Dates: start: 20070809, end: 20080115
  13. SIGMART [Concomitant]
     Dosage: 15 MG, UNK
     Route: 048
     Dates: start: 20070809, end: 20080115
  14. LASIX [Concomitant]
     Dosage: UNK
  15. FERROUS CITRATE [Concomitant]
     Dosage: 100 MG, UNK
     Route: 048
     Dates: start: 20070809, end: 20080115
  16. ISOSORBIDE DINITRATE [Concomitant]
     Dosage: 40 MG, UNK
     Route: 048
     Dates: start: 20070809, end: 20080115
  17. FRANDOL [Concomitant]
     Dosage: 1 DF, UNK
     Route: 048
     Dates: start: 20070809, end: 20080115
  18. RHYTHMY [Concomitant]
     Dosage: 2 MG, UNK
     Route: 048
     Dates: start: 20070809, end: 20080115
  19. LASIX [Concomitant]
     Indication: HYPERTENSION
     Dosage: 100 MG, UNK
     Route: 048
     Dates: start: 20070809
  20. PRORENAL [Concomitant]
     Dosage: 30 MG, UNK
     Route: 048
     Dates: start: 20070809, end: 20080115
  21. PITAVASTATIN CALCIUM [Concomitant]
     Dosage: 0.5 MG, UNK
     Route: 048
     Dates: start: 20070922, end: 20080115
  22. LASIX [Concomitant]
     Dosage: 80 MG, UNK
     Route: 048
  23. LEXOTAN [Concomitant]
     Dosage: 4 MG, UNK
     Route: 048
     Dates: start: 20070809, end: 20071101

REACTIONS (1)
  - DEATH [None]
